FAERS Safety Report 19271260 (Version 1)
Quarter: 2021Q2

REPORT INFORMATION
  Report Type: Spontaneous
  Country: NL (occurrence: IT)
  Receive Date: 20210518
  Receipt Date: 20210518
  Transmission Date: 20210717
  Serious: Yes (Other)
  Sender: FDA-Public Use
  Company Number: IT-FRESENIUS KABI-FK202104916

PATIENT
  Age: 81 Year
  Sex: Male

DRUGS (2)
  1. PACLITAXEL (MANUFACTURER UNKNOWN) [Suspect]
     Active Substance: PACLITAXEL
     Indication: ADENOCARCINOMA GASTRIC
     Dosage: UNK UNK, UNKNOWN
     Route: 065
     Dates: start: 20170821
  2. RAMUCIRUMAB [Suspect]
     Active Substance: RAMUCIRUMAB
     Indication: ADENOCARCINOMA GASTRIC
     Dosage: UNK UNK, UNKNOWN
     Route: 065
     Dates: start: 20170821, end: 20190729

REACTIONS (6)
  - Nervous system disorder [Recovered/Resolved]
  - Toxicity to various agents [Unknown]
  - Proteinuria [Unknown]
  - Febrile neutropenia [Unknown]
  - Hypertension [Unknown]
  - Malignant neoplasm progression [Unknown]
